FAERS Safety Report 6216267-3 (Version None)
Quarter: 2009Q2

REPORT INFORMATION
  Report Type: 
  Country: None (occurrence: None)
  Receive Date: 20090605
  Receipt Date: 20090526
  Transmission Date: 20091009
  Serious: Yes (Hospitalization)
  Sender: FDA-Public Use
  Company Number: B0575632A

PATIENT
  Sex: Male

DRUGS (7)
  1. ALKERAN [Suspect]
     Indication: MULTIPLE MYELOMA
     Route: 048
     Dates: start: 20080618, end: 20081024
  2. THALIDOMIDE [Suspect]
     Indication: MULTIPLE MYELOMA
     Dosage: 100MG PER DAY
     Route: 048
     Dates: start: 20080618
  3. ACTISKENAN [Concomitant]
     Indication: DRUG USE FOR UNKNOWN INDICATION
     Dosage: 2UNIT PER DAY
     Route: 048
     Dates: start: 20080618
  4. PREDNISOLONE [Concomitant]
     Indication: MULTIPLE MYELOMA
     Route: 048
     Dates: start: 20080618
  5. SPECIAFOLDINE [Concomitant]
     Indication: DRUG USE FOR UNKNOWN INDICATION
     Route: 048
     Dates: start: 20080618
  6. ARANESP [Concomitant]
     Indication: DRUG USE FOR UNKNOWN INDICATION
     Dosage: 1UNIT CYCLIC
     Route: 058
     Dates: start: 20080618
  7. KARDEGIC [Concomitant]
     Indication: DRUG USE FOR UNKNOWN INDICATION
     Route: 065
     Dates: start: 20080618

REACTIONS (6)
  - ACUTE FEBRILE NEUTROPHILIC DERMATOSIS [None]
  - PEMPHIGOID [None]
  - RASH MACULO-PAPULAR [None]
  - RASH PUSTULAR [None]
  - RASH VESICULAR [None]
  - SKIN NODULE [None]
